FAERS Safety Report 8016491-3 (Version None)
Quarter: 2011Q4

REPORT INFORMATION
  Report Type: 
  Country: None (occurrence: None)
  Receive Date: 20111230
  Receipt Date: 20111221
  Transmission Date: 20120403
  Serious: Yes (Other)
  Sender: FDA-Public Use
  Company Number: US-ABBOTT-11P-163-0885531-00

PATIENT
  Sex: Female
  Weight: 59.02 kg

DRUGS (6)
  1. HUMIRA [Suspect]
     Indication: CROHN'S DISEASE
  2. ASPIRIN [Concomitant]
     Indication: CARDIAC DISORDER
  3. VITAMIN TAB [Concomitant]
     Indication: VITAMIN SUPPLEMENTATION
  4. SPIRONOLACTONE [Concomitant]
     Indication: BLOOD POTASSIUM ABNORMAL
  5. HUMIRA [Suspect]
  6. ASPIRIN [Concomitant]
     Indication: PROPHYLAXIS

REACTIONS (3)
  - DIARRHOEA [None]
  - INFLUENZA [None]
  - CARDIAC PACEMAKER BATTERY REPLACEMENT [None]
